FAERS Safety Report 7427161-4 (Version None)
Quarter: 2011Q2

REPORT INFORMATION
  Report Type: 
  Country: None (occurrence: None)
  Receive Date: 20110420
  Receipt Date: 20110414
  Transmission Date: 20111010
  Serious: No
  Sender: FDA-Public Use
  Company Number: US-B.I. PHARMACEUTICALS,INC./RIDGEFIELD-2011-BP-10864BP

PATIENT
  Sex: Female

DRUGS (2)
  1. EFFEXOR XR [Concomitant]
     Indication: DEPRESSION
  2. PRADAXA [Suspect]
     Indication: ATRIAL FIBRILLATION
     Dosage: 300 MG
     Route: 048
     Dates: start: 20110413, end: 20110413

REACTIONS (3)
  - MUSCLE SPASMS [None]
  - CRYING [None]
  - PAIN [None]
